FAERS Safety Report 10718369 (Version 3)
Quarter: 2016Q2

REPORT INFORMATION
  Report Type: Spontaneous
  Country: US (occurrence: US)
  Receive Date: 20150119
  Receipt Date: 20160502
  Transmission Date: 20160815
  Serious: Yes (Death, Hospitalization, Other)
  Sender: FDA-Public Use
  Company Number: US-009507513-1501USA005431

PATIENT
  Age: 74 Year
  Sex: Male

DRUGS (6)
  1. IBRUTINIB [Concomitant]
     Active Substance: IBRUTINIB
     Dosage: UNK
     Dates: end: 2014
  2. AMPHOTERICIN B. [Suspect]
     Active Substance: AMPHOTERICIN B
     Indication: MUCORMYCOSIS
     Dosage: 340 MG, QD
     Route: 042
  3. GLOBULIN, IMMUNE [Concomitant]
     Active Substance: HUMAN IMMUNOGLOBULIN G
     Indication: HYPOGAMMAGLOBULINAEMIA
  4. NOXAFIL [Suspect]
     Active Substance: POSACONAZOLE
     Indication: MUCORMYCOSIS
     Dosage: 600 MG PER DAY
     Route: 048
     Dates: start: 20141025, end: 20141204
  5. PREDNISONE. [Concomitant]
     Active Substance: PREDNISONE
     Indication: RHEUMATOID ARTHRITIS
     Dosage: 10 MG, QD
  6. IBRUTINIB [Concomitant]
     Active Substance: IBRUTINIB
     Dosage: 140 MG, QD
     Dates: start: 2014

REACTIONS (2)
  - Death [Fatal]
  - Adverse event [Recovered/Resolved]

NARRATIVE: CASE EVENT DATE: 20150111
